FAERS Safety Report 24698164 (Version 1)
Quarter: 2024Q4

REPORT INFORMATION
  Report Type: Spontaneous
  Country: US (occurrence: US)
  Receive Date: 20241204
  Receipt Date: 20241204
  Transmission Date: 20250115
  Serious: Yes (Other)
  Sender: FERRING
  Company Number: US-FERRINGPH-2024FE06698

PATIENT

DRUGS (2)
  1. ADSTILADRIN [Suspect]
     Active Substance: NADOFARAGENE FIRADENOVEC-VNCG
     Indication: Bladder neoplasm
     Dosage: 75 ML, ONCE/SINGLE
     Route: 043
     Dates: start: 20240807, end: 20240807
  2. ADSTILADRIN [Suspect]
     Active Substance: NADOFARAGENE FIRADENOVEC-VNCG
     Indication: Bladder neoplasm

REACTIONS (5)
  - Bladder neoplasm [Unknown]
  - Bladder discomfort [Unknown]
  - Blood urine present [Unknown]
  - Dysuria [Unknown]
  - Blood urine present [Unknown]

NARRATIVE: CASE EVENT DATE: 20240101
